FAERS Safety Report 4782372-1 (Version None)
Quarter: 2005Q3

REPORT INFORMATION
  Report Type: 
  Country: None (occurrence: None)
  Receive Date: 20050914
  Receipt Date: 20050706
  Transmission Date: 20060218
  Serious: Yes (Other)
  Sender: FDA-Public Use
  Company Number: 163-20785-05070142

PATIENT
  Sex: 0

DRUGS (2)
  1. THALOMID (THALIDOMIDE) (CAPSULES0 [Suspect]
     Indication: OESOPHAGEAL ADENOCARCINOMA
     Dosage: 400MG/DAY PO DAYS -6 THROUGH 7 FOR CYCLE 1 (6 WEEKS), ORAL; SEE IMAGE
     Route: 048
     Dates: start: 20040414
  2. IRINOTECAN HCL [Suspect]
     Indication: OESOPHAGEAL ADENOCARCINOMA
     Dosage: 350MG/M2 IV OVER 90 MINUTES ON DAYS 1 AND 22 FOR CYCLE 1 (6 WEEKS); SEE IMAGE
     Route: 042
     Dates: start: 20040414

REACTIONS (2)
  - HYPERGLYCAEMIA [None]
  - VOMITING [None]
